FAERS Safety Report 9793399 (Version 1)
Quarter: 2014Q1

REPORT INFORMATION
  Report Type: Spontaneous
  Country: NO (occurrence: NO)
  Receive Date: 20140102
  Receipt Date: 20140102
  Transmission Date: 20141002
  Serious: Yes (Congenital Anomaly)
  Sender: FDA-Public Use
  Company Number: NO-TEVA-452750ISR

PATIENT
  Sex: Female

DRUGS (3)
  1. EFEXOR DEPOT [Suspect]
     Indication: DEPRESSION
     Dosage: 75 MILLIGRAM DAILY;
     Route: 064
     Dates: start: 199808, end: 19990130
  2. PARACET [Suspect]
     Indication: PAIN
     Dosage: 50 MG, AS NEEDED
     Route: 064
     Dates: start: 1998, end: 199806
  3. IBUX [Suspect]
     Indication: PAIN
     Dosage: 200 MG, AS NEEDED
     Route: 064
     Dates: start: 1998, end: 199806

REACTIONS (5)
  - Autism spectrum disorder [Unknown]
  - Nausea [Unknown]
  - Headache [Unknown]
  - Abdominal pain upper [Unknown]
  - Maternal exposure timing unspecified [Unknown]
